FAERS Safety Report 6993947-3 (Version None)
Quarter: 2010Q3

REPORT INFORMATION
  Report Type: 
  Country: None (occurrence: None)
  Receive Date: 20100917
  Receipt Date: 20100519
  Transmission Date: 20110219
  Serious: No
  Sender: FDA-Public Use
  Company Number: US-ASTRAZENECA-2010SE23262

PATIENT
  Age: 31 Year
  Sex: Male
  Weight: 81.6 kg

DRUGS (5)
  1. SEROQUEL XR [Suspect]
     Indication: BIPOLAR I DISORDER
     Route: 048
     Dates: start: 20091201, end: 20100405
  2. CYMBALTA [Suspect]
     Dates: start: 20091201
  3. LORCET-HD [Concomitant]
  4. MORPHINE [Concomitant]
  5. XANAX [Concomitant]

REACTIONS (5)
  - AGITATION [None]
  - DEPRESSION [None]
  - DRUG DOSE OMISSION [None]
  - LIBIDO DECREASED [None]
  - SLEEP DISORDER [None]
